FAERS Safety Report 7256178-8 (Version None)
Quarter: 2011Q1

REPORT INFORMATION
  Report Type: 
  Country: None (occurrence: None)
  Receive Date: 20110129
  Receipt Date: 20100528
  Transmission Date: 20110831
  Serious: No
  Sender: FDA-Public Use
  Company Number: US-ABBOTT-10P-163-0648899-00

PATIENT
  Age: 53 Year
  Sex: Female
  Weight: 86.26 kg

DRUGS (13)
  1. HUMIRA [Suspect]
     Indication: RHEUMATOID ARTHRITIS
     Route: 048
     Dates: start: 20100201
  2. NEURONTIN [Concomitant]
     Indication: RESTLESS LEGS SYNDROME
  3. PLAQUENIL [Concomitant]
  4. VITAMIN D [Concomitant]
     Indication: VITAMIN SUPPLEMENTATION
  5. TYLENOL-500 [Concomitant]
     Indication: PAIN
  6. HYDROCODONE [Concomitant]
     Indication: MIGRAINE
  7. OXYCONTIN [Concomitant]
     Indication: MIGRAINE PROPHYLAXIS
     Dosage: DAILY
  8. METHOTREXATE [Concomitant]
     Indication: RHEUMATOID ARTHRITIS
     Dates: start: 20090101
  9. FOLIC ACID [Concomitant]
     Indication: VITAMIN SUPPLEMENTATION
  10. IBUPROFEN [Concomitant]
     Indication: PAIN
  11. IMITREX [Concomitant]
     Indication: MIGRAINE
  12. ASCORBIC ACID [Concomitant]
     Indication: VITAMIN SUPPLEMENTATION
  13. CYMBALTA [Concomitant]

REACTIONS (1)
  - DRUG EFFECT DECREASED [None]
